FAERS Safety Report 14712286 (Version 3)
Quarter: 2019Q4

REPORT INFORMATION
  Report Type: Spontaneous
  Country: BR (occurrence: BR)
  Receive Date: 20180404
  Receipt Date: 20191114
  Transmission Date: 20200122
  Serious: Yes (Hospitalization)
  Sender: FDA-Public Use
  Company Number: BR-BIOGEN-2017BI00421251

PATIENT
  Age: 41 Year
  Sex: Female

DRUGS (6)
  1. MANTIDAN [Concomitant]
     Active Substance: AMANTADINE HYDROCHLORIDE
     Indication: PRODUCT USED FOR UNKNOWN INDICATION
     Route: 050
  2. CINNARIZINE [Suspect]
     Active Substance: CINNARIZINE
     Indication: DIZZINESS
     Route: 050
     Dates: start: 2017
  3. AVONEX PEN [Suspect]
     Active Substance: INTERFERON BETA-1A
  4. AVONEX PEN [Suspect]
     Active Substance: INTERFERON BETA-1A
  5. AVONEX PEN [Suspect]
     Active Substance: INTERFERON BETA-1A
     Indication: MULTIPLE SCLEROSIS
     Route: 050
  6. AVONEX PEN [Suspect]
     Active Substance: INTERFERON BETA-1A
     Route: 050
     Dates: start: 20160614

REACTIONS (8)
  - Nervousness [Not Recovered/Not Resolved]
  - Confusional state [Unknown]
  - Multiple sclerosis relapse [Recovered/Resolved]
  - Inner ear disorder [Unknown]
  - Infection [Unknown]
  - Injection site reaction [Not Recovered/Not Resolved]
  - Feeling abnormal [Not Recovered/Not Resolved]
  - Product dose omission [Recovered/Resolved]

NARRATIVE: CASE EVENT DATE: 201704
